FAERS Safety Report 24303231 (Version 2)
Quarter: 2025Q2

REPORT INFORMATION
  Report Type: Spontaneous
  Country: US (occurrence: US)
  Receive Date: 20240910
  Receipt Date: 20250613
  Transmission Date: 20250717
  Serious: No
  Sender: RECKITT BENCKISER
  Company Number: US-PROD-AS2-212756134-RB-083972-2024

PATIENT
  Sex: Male

DRUGS (1)
  1. MUCINEX [Suspect]
     Active Substance: GUAIFENESIN
     Indication: Product used for unknown indication
     Route: 065

REACTIONS (1)
  - Wrong technique in product usage process [Unknown]
